FAERS Safety Report 5085773-X (Version None)
Quarter: 2006Q3

REPORT INFORMATION
  Report Type: 
  Country: None (occurrence: None)
  Receive Date: 20060817
  Receipt Date: 20060803
  Transmission Date: 20061208
  Serious: Yes (Hospitalization)
  Sender: FDA-Public Use
  Company Number: 2006096879

PATIENT
  Age: 48 Year
  Sex: Male
  Weight: 83.9154 kg

DRUGS (1)
  1. BEXTRA [Suspect]
     Indication: SURGERY
     Dosage: 20 MG (20 MG),
     Dates: start: 20030807

REACTIONS (2)
  - RASH [None]
  - SKIN EXFOLIATION [None]
